FAERS Safety Report 15585010 (Version 1)
Quarter: 2018Q4

REPORT INFORMATION
  Report Type: Report from Study
  Country: BR (occurrence: BR)
  Receive Date: 20181102
  Receipt Date: 20181102
  Transmission Date: 20190205
  Serious: Yes (Other)
  Sender: FDA-Public Use
  Company Number: BR-SHIRE-BR201841474

PATIENT

DRUGS (4)
  1. KIOVIG [Suspect]
     Active Substance: HUMAN IMMUNOGLOBULIN G
     Dosage: 8 VIALS, 1X A MONTH
     Route: 042
     Dates: start: 20180830
  2. KIOVIG [Suspect]
     Active Substance: HUMAN IMMUNOGLOBULIN G
     Indication: PRIMARY IMMUNODEFICIENCY SYNDROME
     Dosage: 8 VIALS, 1X A MONTH
     Route: 042
     Dates: start: 20180803
  3. KIOVIG [Suspect]
     Active Substance: HUMAN IMMUNOGLOBULIN G
     Dosage: 8 VIALS, 1X A MONTH
     Route: 042
     Dates: start: 20180928
  4. CORTISONE [Concomitant]
     Active Substance: CORTISONE\HYDROCORTISONE
     Indication: PRODUCT USED FOR UNKNOWN INDICATION

REACTIONS (18)
  - Malaise [Not Recovered/Not Resolved]
  - Heart rate increased [Recovered/Resolved]
  - Drug effect decreased [Unknown]
  - Meningitis aseptic [Recovered/Resolved]
  - Agitation [Unknown]
  - Fibromyalgia [Unknown]
  - Erythema [Recovered/Resolved]
  - Insomnia [Unknown]
  - Blood pressure abnormal [Recovered/Resolved]
  - Iris disorder [Unknown]
  - Paraesthesia [Recovered/Resolved]
  - Fatigue [Unknown]
  - Hypertension [Unknown]
  - Peripheral swelling [Recovered/Resolved]
  - Adverse drug reaction [Recovered/Resolved]
  - Abnormal weight gain [Unknown]
  - Headache [Recovered/Resolved]
  - Back pain [Recovered/Resolved]
